FAERS Safety Report 4818415-6 (Version None)
Quarter: 2005Q4

REPORT INFORMATION
  Report Type: 
  Country: None (occurrence: None)
  Receive Date: 20051102
  Receipt Date: 20050802
  Transmission Date: 20060501
  Serious: Yes (Disabling)
  Sender: FDA-Public Use
  Company Number: PHRM2005FR02206

PATIENT
  Age: 56 Year
  Sex: Female

DRUGS (3)
  1. CHEMOTHERAPEUTICS,OTHER [Concomitant]
     Indication: BREAST CANCER METASTATIC
     Dates: end: 20041201
  2. ZOMETA [Suspect]
     Indication: METASTASES TO BONE
     Dosage: 4 MG, QMO
     Route: 042
     Dates: start: 20021030, end: 20050523
  3. AREDIA [Suspect]
     Indication: METASTASES TO BONE
     Route: 042
     Dates: start: 19990407, end: 20021030

REACTIONS (7)
  - ACTINOMYCOSIS [None]
  - IMPAIRED HEALING [None]
  - OPEN WOUND [None]
  - OSTEONECROSIS [None]
  - SINUSITIS [None]
  - SURGERY [None]
  - TOOTH EXTRACTION [None]
